FAERS Safety Report 24825516 (Version 1)
Quarter: 2025Q1

REPORT INFORMATION
  Report Type: Spontaneous
  Country: US (occurrence: US)
  Receive Date: 20250109
  Receipt Date: 20250109
  Transmission Date: 20250408
  Serious: Yes (Other)
  Sender: PFIZER
  Company Number: US-PFIZER INC-PV202500002434

PATIENT
  Age: 12 Year
  Sex: Male

DRUGS (2)
  1. LINEZOLID [Suspect]
     Active Substance: LINEZOLID
  2. TOBRAMYCIN [Suspect]
     Active Substance: TOBRAMYCIN

REACTIONS (3)
  - Renal failure [Unknown]
  - Atypical mycobacterial pneumonia [Unknown]
  - Graft versus host disease [Unknown]
